FAERS Safety Report 5198434-3 (Version None)
Quarter: 2006Q4

REPORT INFORMATION
  Report Type: 
  Country: None (occurrence: None)
  Receive Date: 20061228
  Receipt Date: 20061228
  Transmission Date: 20070319
  Serious: Yes (Other)
  Sender: FDA-Public Use
  Company Number: None

PATIENT
  Age: 53 Year
  Sex: Male
  Weight: 97.5234 kg

DRUGS (1)
  1. SERTRALINE [Suspect]
     Dosage: 50MG PO DAILY
     Route: 048
     Dates: start: 20060914, end: 20060921

REACTIONS (4)
  - DEPRESSION [None]
  - DISEASE RECURRENCE [None]
  - HEADACHE [None]
  - MIGRAINE [None]
